FAERS Safety Report 7681361-7 (Version None)
Quarter: 2011Q3

REPORT INFORMATION
  Report Type: 
  Country: None (occurrence: None)
  Receive Date: 20110812
  Receipt Date: 20110808
  Transmission Date: 20111222
  Serious: Yes (Other)
  Sender: FDA-Public Use
  Company Number: US-CEPHALON-2008000714

PATIENT
  Sex: Female
  Weight: 61 kg

DRUGS (2)
  1. PROVIGIL [Suspect]
     Indication: AFFECTIVE DISORDER
     Route: 048
     Dates: start: 20060101
  2. KLONOPIN [Concomitant]
     Indication: ANXIETY
     Route: 048
     Dates: start: 20040101

REACTIONS (1)
  - DEHYDRATION [None]
